FAERS Safety Report 4567902-7 (Version None)
Quarter: 2005Q1

REPORT INFORMATION
  Report Type: 
  Country: None (occurrence: None)
  Receive Date: 20050202
  Receipt Date: 20041019
  Transmission Date: 20050727
  Serious: Yes (Death)
  Sender: FDA-Public Use
  Company Number: 200417994US

PATIENT
  Sex: Female
  Weight: 63 kg

DRUGS (14)
  1. ARAVA [Suspect]
     Indication: ARTHRITIS
     Route: 048
     Dates: start: 20030125, end: 20040501
  2. HUMIRA                                  /USA/ [Concomitant]
     Route: 051
     Dates: start: 20040504
  3. PREVACID [Concomitant]
  4. SYNTHROID [Concomitant]
     Route: 048
  5. FOSAMAX [Concomitant]
  6. PREDNISONE [Concomitant]
  7. XANAX [Concomitant]
  8. CELEBREX [Concomitant]
     Dosage: DOSE: UNK
  9. TYLENOL W/ CODEINE NO. 3 [Concomitant]
     Dosage: DOSE: UNK
  10. ADVAIR DISKUS 100/50 [Concomitant]
     Indication: INTERSTITIAL LUNG DISEASE
     Dosage: DOSE: 1 PUFF
  11. CALCIUM WITH VITAMIN D [Concomitant]
  12. VITAMIN E [Concomitant]
     Dosage: DOSE: UNK
  13. ONE-A-DAY [Concomitant]
     Dosage: DOSE: UNK
  14. GLUCOSAMINE W/CHONDROITIN SULFATES [Concomitant]
     Dosage: DOSE: UNK

REACTIONS (7)
  - APHASIA [None]
  - ARTERIOVENOUS MALFORMATION [None]
  - BLOOD PRESSURE INCREASED [None]
  - COMA [None]
  - HEADACHE [None]
  - INTRAVENTRICULAR HAEMORRHAGE [None]
  - SUBARACHNOID HAEMORRHAGE [None]
